FAERS Safety Report 24638694 (Version 1)
Quarter: 2024Q4

REPORT INFORMATION
  Report Type: Spontaneous
  Country: SA (occurrence: SA)
  Receive Date: 20241119
  Receipt Date: 20241119
  Transmission Date: 20250114
  Serious: Yes (Hospitalization, Other)
  Sender: RANBAXY
  Company Number: SA-SUN PHARMACEUTICAL INDUSTRIES LTD-2024RR-479365

PATIENT
  Age: 23 Year
  Sex: Male

DRUGS (1)
  1. ISOTRETINOIN [Suspect]
     Active Substance: ISOTRETINOIN
     Indication: Acne
     Dosage: 40 MILLIGRAM, QD
     Route: 065

REACTIONS (10)
  - Weight decreased [Unknown]
  - Appetite disorder [Recovering/Resolving]
  - Dyskinesia [Recovering/Resolving]
  - Agitation [Recovering/Resolving]
  - Hallucination, auditory [Recovering/Resolving]
  - Crying [Recovering/Resolving]
  - Social problem [Recovering/Resolving]
  - Social avoidant behaviour [Recovering/Resolving]
  - Mood altered [Recovering/Resolving]
  - Substance-induced psychotic disorder [Recovering/Resolving]
